FAERS Safety Report 10347517 (Version 7)
Quarter: 2015Q4

REPORT INFORMATION
  Report Type: Spontaneous
  Country: US (occurrence: None)
  Receive Date: 20140725
  Receipt Date: 20151230
  Transmission Date: 20160304
  Serious: Yes (Hospitalization, Other)
  Sender: FDA-Public Use
  Company Number: ADR-2014-01296

PATIENT
  Age: 11 Year
  Sex: Female

DRUGS (2)
  1. LIORESAL [Suspect]
     Active Substance: BACLOFEN
     Indication: MUSCLE SPASTICITY
     Dosage: 130 MCG/DAY
  2. MELATONIN VIA GT (GASTRIC TUBE) [Suspect]
     Active Substance: MELATONIN
     Dosage: 3 MLS AT BEDTIME

REACTIONS (5)
  - Ileus [None]
  - Medical device site discharge [None]
  - Pseudomeningocele [None]
  - Swelling [None]
  - Bloody discharge [None]
